FAERS Safety Report 8989909 (Version 1)
Quarter: 2012Q4

REPORT INFORMATION
  Report Type: 
  Country: FR (occurrence: FR)
  Receive Date: 20121228
  Receipt Date: 20121228
  Transmission Date: 20130627
  Serious: Yes (Other)
  Sender: FDA-Public Use
  Company Number: FR-GLAXOSMITHKLINE-B0854252A

PATIENT
  Sex: Female

DRUGS (3)
  1. ADARTREL [Suspect]
     Indication: RESTLESS LEGS SYNDROME
     Route: 048
     Dates: start: 201203, end: 201209
  2. SIFROL [Suspect]
     Indication: RESTLESS LEGS SYNDROME
     Dosage: .18MG per day
     Route: 048
     Dates: start: 201209
  3. LEXOMIL [Concomitant]
     Indication: INITIAL INSOMNIA
     Route: 048
     Dates: end: 201206

REACTIONS (2)
  - Headache [Not Recovered/Not Resolved]
  - Middle insomnia [Not Recovered/Not Resolved]
